FAERS Safety Report 11898368 (Version 1)
Quarter: 2016Q1

REPORT INFORMATION
  Report Type: Spontaneous
  Country: US (occurrence: US)
  Receive Date: 20160108
  Receipt Date: 20160108
  Transmission Date: 20160526
  Serious: No
  Sender: FDA-Public Use
  Company Number: US-VIFOR (INTERNATIONAL) INC.-VIT-2015-03552

PATIENT
  Age: 57 Year
  Sex: Male
  Weight: 80.6 kg

DRUGS (1)
  1. MIRCERA [Suspect]
     Active Substance: METHOXY POLYETHYLENE GLYCOL-EPOETIN BETA
     Indication: PRODUCT USED FOR UNKNOWN INDICATION
     Dates: start: 20150501, end: 20150515

REACTIONS (2)
  - Pruritus [Unknown]
  - Dysgeusia [Unknown]

NARRATIVE: CASE EVENT DATE: 20150501
